FAERS Safety Report 16346334 (Version 2)
Quarter: 2019Q2

REPORT INFORMATION
  Report Type: Spontaneous
  Country: US (occurrence: US)
  Receive Date: 20190523
  Receipt Date: 20190626
  Transmission Date: 20190711
  Serious: No
  Sender: FDA-Public Use
  Company Number: US-PFIZER INC-2019182862

PATIENT
  Age: 68 Year
  Sex: Female

DRUGS (3)
  1. DILANTIN [Suspect]
     Active Substance: PHENYTOIN
     Indication: EPILEPSY
     Dosage: TAKE 5 PILLS (500 MG) ONE DAY AND 6 PILLS (600 MG) THE NEXT, ALTERNATING DOSES
  2. DILANTIN [Suspect]
     Active Substance: PHENYTOIN
     Indication: GLIOBLASTOMA
  3. DILANTIN [Suspect]
     Active Substance: PHENYTOIN
     Indication: SEIZURE
     Dosage: 500 MG, DAILY (100 MG CAPSULES, TWO IN THE MORNING, ONE AT LUNCH TIME AND TWO IN THE EVENING)
     Dates: start: 1985

REACTIONS (3)
  - Poor quality sleep [Unknown]
  - Therapeutic product effect incomplete [Unknown]
  - Musculoskeletal discomfort [Unknown]

NARRATIVE: CASE EVENT DATE: 2018
